FAERS Safety Report 5290570-6 (Version None)
Quarter: 2007Q2

REPORT INFORMATION
  Report Type: 
  Country: None (occurrence: None)
  Receive Date: 20070409
  Receipt Date: 20070329
  Transmission Date: 20071010
  Serious: Yes (Hospitalization, Other)
  Sender: FDA-Public Use
  Company Number: CH-AVENTIS-200712867GDDC

PATIENT
  Age: 59 Year
  Sex: Female

DRUGS (16)
  1. FLAGYL [Suspect]
     Route: 048
     Dates: start: 20070308
  2. CYTARABINE [Suspect]
     Route: 037
     Dates: start: 20070219, end: 20070310
  3. METHOTREXATE [Suspect]
     Route: 037
     Dates: start: 20070219, end: 20070310
  4. BACTRIM DS [Suspect]
     Dosage: DOSE: 800/160
     Route: 048
     Dates: start: 20070220, end: 20070310
  5. GLEEVEC [Concomitant]
     Route: 048
     Dates: start: 20070219
  6. VINCRISTINE [Concomitant]
     Route: 042
     Dates: start: 20070219
  7. DEXAMETHASONE [Concomitant]
     Route: 042
     Dates: start: 20070219
  8. CEFEPIME [Concomitant]
     Route: 042
     Dates: start: 20070208
  9. LIQUEMIN                           /00027701/ [Concomitant]
     Route: 042
     Dates: start: 20070305
  10. VALTREX [Concomitant]
     Route: 048
     Dates: start: 20070209
  11. DIFLUCAN [Concomitant]
     Route: 048
     Dates: start: 20070220
  12. NEXIUM [Concomitant]
     Route: 048
     Dates: start: 20070219
  13. PASPERTIN [Concomitant]
     Indication: NAUSEA
     Route: 048
     Dates: start: 20070219
  14. PASPERTIN [Concomitant]
     Indication: VOMITING
     Route: 048
     Dates: start: 20070219
  15. LEUCOVORIN CALCIUM [Concomitant]
     Route: 048
     Dates: start: 20070219
  16. METHYLPREDNISOLONE 16MG TAB [Concomitant]
     Route: 037

REACTIONS (1)
  - MENINGITIS ASEPTIC [None]
